FAERS Safety Report 6717891-1 (Version None)
Quarter: 2010Q2

REPORT INFORMATION
  Report Type: 
  Country: None (occurrence: None)
  Receive Date: 20100507
  Receipt Date: 20100507
  Transmission Date: 20101027
  Serious: Yes (Hospitalization)
  Sender: FDA-Public Use
  Company Number: None

PATIENT
  Sex: Female
  Weight: 60.2 kg

DRUGS (3)
  1. PEG-L-ASPARAGINASE (K-H) [Suspect]
     Dosage: 510 MG
  2. VINCRISTINE SULFATE [Suspect]
     Dosage: 2 MG
  3. METHOTREXATE [Suspect]
     Dosage: 185 MG

REACTIONS (9)
  - ANAPHYLACTIC REACTION [None]
  - ASTHENIA [None]
  - BRADYCARDIA [None]
  - HYPOTENSION [None]
  - INFUSION RELATED REACTION [None]
  - PRESYNCOPE [None]
  - SKIN BURNING SENSATION [None]
  - SOMNOLENCE [None]
  - VOMITING [None]
